FAERS Safety Report 15645312 (Version 2)
Quarter: 2018Q4

REPORT INFORMATION
  Report Type: Report from Study
  Country: US (occurrence: US)
  Receive Date: 20181121
  Receipt Date: 20181130
  Transmission Date: 20190205
  Serious: Yes (Other)
  Sender: FDA-Public Use
  Company Number: US-PFIZER INC-2018463279

PATIENT
  Age: 65 Year
  Sex: Female
  Weight: 54.88 kg

DRUGS (12)
  1. FUROSEMIDE. [Concomitant]
     Active Substance: FUROSEMIDE
     Dosage: UNK
  2. SERTRALINE [Concomitant]
     Active Substance: SERTRALINE HYDROCHLORIDE
     Indication: DEPRESSION
     Dosage: UNK
  3. PRAMIPEXOLE. [Concomitant]
     Active Substance: PRAMIPEXOLE
     Indication: PARKINSON^S DISEASE
     Dosage: UNK
  4. TRAZODONE [Concomitant]
     Active Substance: TRAZODONE HYDROCHLORIDE
     Dosage: UNK
  5. ADVIL [Suspect]
     Active Substance: IBUPROFEN
     Dosage: UNK
  6. DUOPA [Suspect]
     Active Substance: CARBIDOPA\LEVODOPA
     Dosage: UNK (ROUTE PERCUTANEOUS J/PERCUTANEOUS J-TUBE)
     Dates: end: 20181002
  7. SINEMET [Concomitant]
     Active Substance: CARBIDOPA\LEVODOPA
     Indication: PARKINSON^S DISEASE
     Dosage: UNK
  8. MIRAPEX [Concomitant]
     Active Substance: PRAMIPEXOLE DIHYDROCHLORIDE
     Dosage: UNK
  9. FOLIC ACID. [Concomitant]
     Active Substance: FOLIC ACID
     Indication: SUPPLEMENTATION THERAPY
     Dosage: UNK
  10. DUOPA [Suspect]
     Active Substance: CARBIDOPA\LEVODOPA
     Indication: PARKINSON^S DISEASE
     Dosage: UNK (ROUTE PERCUTANEOUS J/PERCUTANEOUS J-TUBE)
     Dates: start: 20180115, end: 20180924
  11. DUOPA [Suspect]
     Active Substance: CARBIDOPA\LEVODOPA
     Dosage: UNK
     Dates: end: 20180926
  12. MELOXICAM. [Concomitant]
     Active Substance: MELOXICAM
     Indication: PAIN
     Dosage: UNK

REACTIONS (18)
  - Weight decreased [Not Recovered/Not Resolved]
  - Medical device site irritation [Recovered/Resolved]
  - Stoma site discharge [Recovered/Resolved]
  - Stoma site erythema [Recovered/Resolved]
  - Anaemia [Recovered/Resolved]
  - Device dislocation [Unknown]
  - Gastrointestinal stoma complication [Recovered/Resolved]
  - Freezing phenomenon [Not Recovered/Not Resolved]
  - Device deployment issue [Unknown]
  - Device issue [Unknown]
  - Fall [Not Recovered/Not Resolved]
  - Stoma site infection [Recovered/Resolved]
  - Device breakage [Recovering/Resolving]
  - Insomnia [Not Recovered/Not Resolved]
  - Gait disturbance [Not Recovered/Not Resolved]
  - Medical device discomfort [Recovered/Resolved]
  - Therapy cessation [Unknown]
  - Stoma site irritation [Unknown]

NARRATIVE: CASE EVENT DATE: 2018
